FAERS Safety Report 5133968-9 (Version None)
Quarter: 2006Q4

REPORT INFORMATION
  Report Type: 
  Country: None (occurrence: None)
  Receive Date: 20061023
  Receipt Date: 20061023
  Transmission Date: 20070319
  Serious: Yes (Other)
  Sender: FDA-Public Use
  Company Number: None

PATIENT
  Sex: Female

DRUGS (2)
  1. VENLAFAXIINE HCL [Suspect]
     Indication: DEPRESSION
     Dosage: ONE BID   75MG   ORAL
     Route: 048
  2. VENLAFAXIINE HCL [Suspect]
     Indication: HEADACHE
     Dosage: ONE BID   75MG   ORAL
     Route: 048

REACTIONS (3)
  - DRUG INTOLERANCE [None]
  - OEDEMA MOUTH [None]
  - TONGUE BLISTERING [None]
